FAERS Safety Report 7371748 (Version 3)
Quarter: 2019Q3

REPORT INFORMATION
  Report Type: Report from Study
  Country: DE (occurrence: DE)
  Receive Date: 20100430
  Receipt Date: 20190903
  Transmission Date: 20191005
  Serious: Yes (Hospitalization, Other)
  Sender: FDA-Public Use
  Company Number: DE-SANOFI-AVENTIS-2010SA024670

PATIENT
  Age: 78 Year
  Sex: Female
  Weight: 72 kg

DRUGS (9)
  1. FLUPIRTINE MALEATE [Suspect]
     Active Substance: FLUPIRTINE MALEATE
     Indication: PROCEDURAL PAIN
     Dosage: 1 DF, QD
     Route: 048
     Dates: start: 20091119, end: 200912
  2. METAMIZOLE SALT NOT SPECIFIED [Suspect]
     Active Substance: METAMIZOLE
     Dosage: 2000 MG
     Route: 048
     Dates: start: 20091119, end: 200912
  3. METAMIZOLE SALT NOT SPECIFIED [Suspect]
     Active Substance: METAMIZOLE
     Indication: PROCEDURAL PAIN
     Dosage: 4 DF, QD
     Route: 048
     Dates: start: 20091119, end: 200912
  4. CLEXANE [Suspect]
     Active Substance: ENOXAPARIN SODIUM
     Indication: PROCEDURAL PAIN
  5. BISOPROLOL HEMIFUMARATE [Concomitant]
     Active Substance: BISOPROLOL FUMARATE
     Indication: PRODUCT USED FOR UNKNOWN INDICATION
     Dosage: 10 MG,QD
     Route: 048
  6. FLUPIRTINE MALEATE [Suspect]
     Active Substance: FLUPIRTINE MALEATE
     Dosage: 400 MG, QD
     Route: 048
     Dates: start: 20091119, end: 200912
  7. AMLODIPINE BESILATE [Concomitant]
     Active Substance: AMLODIPINE BESYLATE
     Indication: PRODUCT USED FOR UNKNOWN INDICATION
     Dosage: 10 MG,UNK
     Route: 048
     Dates: start: 2006
  8. ENOXAPARIN SODIUM. [Concomitant]
     Active Substance: ENOXAPARIN SODIUM
     Indication: PROCEDURAL PAIN
     Dosage: 40 MG, QD
     Route: 058
     Dates: start: 20091119, end: 200912
  9. CLEXANE [Suspect]
     Active Substance: ENOXAPARIN SODIUM
     Indication: IMMOBILE
     Dosage: 40 MG,QD
     Route: 058
     Dates: start: 20091119, end: 200912

REACTIONS (7)
  - Alanine aminotransferase increased [Recovered/Resolved]
  - Jaundice [Recovered/Resolved]
  - Drug-induced liver injury [Recovered/Resolved]
  - Aspartate aminotransferase increased [Recovered/Resolved]
  - Alanine aminotransferase increased [Recovered/Resolved]
  - Jaundice [Recovered/Resolved]
  - Transaminases increased [Recovered/Resolved]

NARRATIVE: CASE EVENT DATE: 20091228
